FAERS Safety Report 15664493 (Version 7)
Quarter: 2020Q3

REPORT INFORMATION
  Report Type: Spontaneous
  Country: BR (occurrence: BR)
  Receive Date: 20181128
  Receipt Date: 20200714
  Transmission Date: 20201102
  Serious: Yes (Other)
  Sender: FDA-Public Use
  Company Number: BR-ELI_LILLY_AND_COMPANY-BR201811012397

PATIENT
  Sex: Female

DRUGS (3)
  1. FORTEO [Suspect]
     Active Substance: TERIPARATIDE
     Indication: OSTEOPOROSIS
     Dosage: UNK, UNKNOWN
     Route: 065
     Dates: start: 20180917
  2. MESTINON [Concomitant]
     Active Substance: PYRIDOSTIGMINE BROMIDE
     Indication: MYASTHENIA GRAVIS
  3. FORTEO [Suspect]
     Active Substance: TERIPARATIDE
     Dosage: UNK
     Route: 065

REACTIONS (8)
  - Blood pressure increased [Unknown]
  - Malaise [Unknown]
  - Arrhythmia [Unknown]
  - Muscle spasms [Unknown]
  - Urticaria [Unknown]
  - Dementia Alzheimer^s type [Unknown]
  - Dyspnoea [Unknown]
  - Myasthenia gravis [Unknown]
